FAERS Safety Report 10685324 (Version 2)
Quarter: 2014Q4

REPORT INFORMATION
  Report Type: Spontaneous
  Country: US (occurrence: US)
  Receive Date: 20141231
  Receipt Date: 20141231
  Transmission Date: 20150529
  Serious: Yes (Disabling)
  Sender: FDA-Public Use
  Company Number: US-009507513-1204USA03762

PATIENT
  Sex: Male

DRUGS (2)
  1. FINASTERIDE. [Suspect]
     Active Substance: FINASTERIDE
     Indication: ALOPECIA
     Dosage: 1 MG, UNK
     Route: 048
     Dates: start: 200205, end: 200906
  2. PROPECIA [Suspect]
     Active Substance: FINASTERIDE
     Indication: ALOPECIA
     Dosage: 1 MG, UNK
     Route: 048
     Dates: start: 20020520, end: 200906

REACTIONS (8)
  - Cognitive disorder [Unknown]
  - Sexual dysfunction [Unknown]
  - Erectile dysfunction [Unknown]
  - Ejaculation failure [Unknown]
  - Libido decreased [Unknown]
  - Anxiety [Unknown]
  - Depression [Unknown]
  - Blood testosterone decreased [Unknown]

NARRATIVE: CASE EVENT DATE: 2010
